FAERS Safety Report 8188229-0 (Version None)
Quarter: 2012Q1

REPORT INFORMATION
  Report Type: 
  Country: None (occurrence: None)
  Receive Date: 20120306
  Receipt Date: 20101122
  Transmission Date: 20120608
  Serious: Yes (Hospitalization)
  Sender: FDA-Public Use
  Company Number: BR-BAYER-201021158LA

PATIENT
  Age: 29 Year
  Sex: Female

DRUGS (6)
  1. CITONEURIN [Concomitant]
     Route: 048
  2. GABAPENTIN [Concomitant]
     Indication: MUSCLE SPASMS
     Route: 048
  3. BETASERON [Suspect]
     Indication: MULTIPLE SCLEROSIS
     Dosage: 8 MIU, QOD
     Route: 058
     Dates: start: 20100501
  4. BETASERON [Suspect]
     Dosage: 9.6 MIU, QOD
     Route: 058
     Dates: end: 20100926
  5. BACLOFEN [Concomitant]
     Indication: MUSCLE SPASMS
     Route: 048
  6. PAROXETINE [Concomitant]
     Indication: ANTIDEPRESSANT THERAPY
     Route: 048

REACTIONS (9)
  - FATIGUE [None]
  - HYPERTENSION [None]
  - URINARY TRACT INFECTION [None]
  - MULTIPLE SCLEROSIS RELAPSE [None]
  - PARAESTHESIA [None]
  - VULVOVAGINAL CANDIDIASIS [None]
  - MUSCULAR WEAKNESS [None]
  - MUSCLE RIGIDITY [None]
  - ASTHENIA [None]
